FAERS Safety Report 8108248-X (Version None)
Quarter: 2012Q1

REPORT INFORMATION
  Report Type: 
  Country: None (occurrence: None)
  Receive Date: 20120202
  Receipt Date: 20120201
  Transmission Date: 20120608
  Serious: Yes (Death)
  Sender: FDA-Public Use
  Company Number: US-VERTEX PHARMACEUTICALS INC.-AE-2012-001582

PATIENT
  Sex: Female

DRUGS (15)
  1. PEGASYS [Concomitant]
     Indication: HEPATITIS C
     Route: 058
     Dates: start: 20111112
  2. RIBAVIRIN [Concomitant]
     Indication: HEPATITIS C
     Route: 048
     Dates: start: 20111112
  3. LEVOTHYROXINE SODIUM [Concomitant]
  4. MORPHINE [Concomitant]
  5. STEROID [Concomitant]
  6. OXYCODONE HCL [Concomitant]
  7. LORAZEPAM [Concomitant]
  8. VITAMIN B COMPLEX CAP [Concomitant]
  9. MILK THISTLE [Concomitant]
  10. ASCORBIC ACID [Concomitant]
  11. FOLIC ACID [Concomitant]
  12. INCIVEK [Suspect]
     Indication: HEPATITIS C
     Route: 048
  13. RANITIDINE [Concomitant]
  14. VITAMIN E [Concomitant]
  15. GABAPENTIN [Concomitant]

REACTIONS (2)
  - MYOCARDIAL INFARCTION [None]
  - THROMBOSIS [None]
